FAERS Safety Report 6081321-6 (Version None)
Quarter: 2009Q1

REPORT INFORMATION
  Report Type: 
  Country: None (occurrence: None)
  Receive Date: 20090206
  Receipt Date: 20090122
  Transmission Date: 20090719
  Serious: Yes (Hospitalization, Other)
  Sender: FDA-Public Use
  Company Number: THYM-1000897

PATIENT
  Age: 51 Year
  Sex: Male
  Weight: 80 kg

DRUGS (7)
  1. THYMOGLOBULIN [Suspect]
     Indication: LIVER TRANSPLANT
     Dosage: 100 MG, QD, INTRAVENOUS : 100 MG, QD, INTRAVENOUS : 100 MG, QD, INTRAVENOUS
     Route: 042
     Dates: start: 20090104, end: 20090104
  2. THYMOGLOBULIN [Suspect]
     Indication: LIVER TRANSPLANT
     Dosage: 100 MG, QD, INTRAVENOUS : 100 MG, QD, INTRAVENOUS : 100 MG, QD, INTRAVENOUS
     Route: 042
     Dates: start: 20090109, end: 20090109
  3. THYMOGLOBULIN [Suspect]
     Indication: LIVER TRANSPLANT
     Dosage: 100 MG, QD, INTRAVENOUS : 100 MG, QD, INTRAVENOUS : 100 MG, QD, INTRAVENOUS
     Route: 042
     Dates: start: 20070112, end: 20090112
  4. METHYLPREDNISOLONE 16MG TAB [Concomitant]
  5. PREDNISONE TAB [Concomitant]
  6. CYCLOSPORINE [Concomitant]
  7. AZATHIOPRINE [Concomitant]

REACTIONS (1)
  - LIVER TRANSPLANT REJECTION [None]
